FAERS Safety Report 9272299 (Version 1)
Quarter: 2013Q2

REPORT INFORMATION
  Report Type: Spontaneous
  Country: US (occurrence: US)
  Receive Date: 20130506
  Receipt Date: 20130506
  Transmission Date: 20140414
  Serious: No
  Sender: FDA-Public Use
  Company Number: US-ASTRAZENECA-2012SE90928

PATIENT
  Age: 70 Year
  Sex: Male

DRUGS (3)
  1. PRILOSEC OTC [Suspect]
     Route: 048
     Dates: start: 20121019, end: 20121019
  2. TYLENOL [Concomitant]
  3. PROMETHAZINE [Concomitant]
     Indication: COUGH

REACTIONS (3)
  - Gastric disorder [Unknown]
  - Abdominal pain [Unknown]
  - Abdominal pain upper [Unknown]
